FAERS Safety Report 24685338 (Version 1)
Quarter: 2024Q4

REPORT INFORMATION
  Report Type: Spontaneous
  Country: DE (occurrence: DE)
  Receive Date: 20241202
  Receipt Date: 20241202
  Transmission Date: 20250115
  Serious: Yes (Other)
  Sender: ROCHE
  Company Number: DE-ROCHE-10000143625

PATIENT
  Sex: Female

DRUGS (1)
  1. AVASTIN [Suspect]
     Active Substance: BEVACIZUMAB
     Indication: Hydrocephalus
     Route: 065
     Dates: start: 20240918

REACTIONS (2)
  - Off label use [Unknown]
  - Haemolytic anaemia [Unknown]
